FAERS Safety Report 12317793 (Version 2)
Quarter: 2016Q2

REPORT INFORMATION
  Report Type: Spontaneous
  Country: HU (occurrence: HU)
  Receive Date: 20160429
  Receipt Date: 20160510
  Transmission Date: 20160815
  Serious: Yes (Death)
  Sender: FDA-Public Use
  Company Number: HU-PFIZER INC-2016225161

PATIENT
  Age: 66 Year
  Sex: Male

DRUGS (1)
  1. XALKORI [Suspect]
     Active Substance: CRIZOTINIB
     Indication: ADENOCARCINOMA
     Dosage: 250 MG, 2X/DAY
     Dates: start: 20160405

REACTIONS (2)
  - Haemoptysis [Unknown]
  - Death [Fatal]
